FAERS Safety Report 5191748-2 (Version None)
Quarter: 2006Q4

REPORT INFORMATION
  Report Type: 
  Country: None (occurrence: None)
  Receive Date: 20061219
  Receipt Date: 20061208
  Transmission Date: 20070319
  Serious: Yes (Hospitalization)
  Sender: FDA-Public Use
  Company Number: B0448913A

PATIENT
  Age: 60 Year
  Sex: Male

DRUGS (9)
  1. VALTREX TABLET (VALACICLOVIR HCL) [Suspect]
     Indication: HERPES ZOSTER
     Dosage: 6 TABLET / PER DAY / ORAL
     Route: 048
  2. THEOPHYLLINE [Suspect]
     Indication: CARDIAC FAILURE
     Dosage: 400 MG / PER DAY / ORAL
     Route: 048
  3. DIGOXIN [Concomitant]
  4. IMIDAPRIL HYDROCHLORIDE [Concomitant]
  5. DILTIAZEM HYDROCHLORIDE [Concomitant]
  6. ISOSORBIDE MONONITRATE [Concomitant]
  7. ALLOPURINOL SODIUM [Concomitant]
  8. TICLOPIDINE [Concomitant]
  9. WARFARIN SODIUM [Concomitant]

REACTIONS (5)
  - ANOREXIA [None]
  - DRUG INTERACTION POTENTIATION [None]
  - DRUG LEVEL ABOVE THERAPEUTIC [None]
  - THERAPEUTIC AGENT TOXICITY [None]
  - VOMITING [None]
